FAERS Safety Report 5935207-5 (Version None)
Quarter: 2008Q4

REPORT INFORMATION
  Report Type: 
  Country: None (occurrence: None)
  Receive Date: 20081028
  Receipt Date: 20081017
  Transmission Date: 20090506
  Serious: Yes (Life-Threatening)
  Sender: FDA-Public Use
  Company Number: GXKR2008GB09949

PATIENT
  Age: 42 Year
  Sex: Female

DRUGS (4)
  1. GABAPENTIN [Suspect]
     Indication: PAIN
     Dosage: 100 MG TID ORAL
     Route: 048
     Dates: start: 20080904
  2. NAPROXEN [Concomitant]
  3. SOLPADOL (CODEINE PHOSPHATE, PARACETAMOL) [Concomitant]
  4. SERVIDOL [Concomitant]

REACTIONS (1)
  - ACUTE HEPATIC FAILURE [None]
